FAERS Safety Report 4352415-8 (Version None)
Quarter: 2004Q2

REPORT INFORMATION
  Report Type: 
  Country: None (occurrence: None)
  Receive Date: 20040428
  Receipt Date: 20040413
  Transmission Date: 20050107
  Serious: Yes (Hospitalization)
  Sender: FDA-Public Use
  Company Number: US_0404102239

PATIENT
  Age: 66 Year
  Sex: Male

DRUGS (7)
  1. VANCOMYCIN [Suspect]
     Indication: STAPHYLOCOCCAL INFECTION
  2. IRBESARTAN [Concomitant]
  3. FELODIPINE [Concomitant]
  4. CARVEDILOL [Concomitant]
  5. RANITIDINE [Concomitant]
  6. DOMPERIDONE [Concomitant]
  7. AZTREONAM [Concomitant]

REACTIONS (7)
  - AGRANULOCYTOSIS [None]
  - DRUG INEFFECTIVE [None]
  - LYMPHOCYTE COUNT INCREASED [None]
  - PERITONITIS [None]
  - PNEUMONIA ASPIRATION [None]
  - STREPTOCOCCAL INFECTION [None]
  - WHITE BLOOD CELL COUNT DECREASED [None]
